FAERS Safety Report 15155292 (Version 2)
Quarter: 2018Q3

REPORT INFORMATION
  Report Type: Spontaneous
  Country: CN (occurrence: CN)
  Receive Date: 20180717
  Receipt Date: 20180821
  Transmission Date: 20181010
  Serious: Yes (Other)
  Sender: FDA-Public Use
  Company Number: PHHY2018CN043894

PATIENT

DRUGS (1)
  1. FILGRASTIM [Suspect]
     Active Substance: FILGRASTIM
     Indication: NEOPLASM MALIGNANT
     Dosage: UNK
     Route: 065

REACTIONS (5)
  - Atrial fibrillation [Unknown]
  - Dyspnoea [Unknown]
  - Blood pressure decreased [Unknown]
  - Rales [Unknown]
  - Wheezing [Recovered/Resolved]
